FAERS Safety Report 4489611-5 (Version None)
Quarter: 2004Q4

REPORT INFORMATION
  Report Type: 
  Country: None (occurrence: None)
  Receive Date: 20041101
  Receipt Date: 20041025
  Transmission Date: 20050328
  Serious: Yes (Other)
  Sender: FDA-Public Use
  Company Number: PHEH2004US11562

PATIENT
  Age: 67 Year
  Sex: Female
  Weight: 75 kg

DRUGS (2)
  1. DIOVAN HCT [Suspect]
     Indication: HYPERTENSION
     Dates: end: 20041022
  2. ZOCOR [Concomitant]

REACTIONS (4)
  - DYSGEUSIA [None]
  - GINGIVAL PAIN [None]
  - ORAL PAIN [None]
  - STOMATITIS [None]
